FAERS Safety Report 15099162 (Version 2)
Quarter: 2018Q3

REPORT INFORMATION
  Report Type: Spontaneous
  Country: US (occurrence: US)
  Receive Date: 20180702
  Receipt Date: 20180823
  Transmission Date: 20181010
  Serious: No
  Sender: FDA-Public Use
  Company Number: US-TEVA-2018-US-916375

PATIENT
  Age: 30 Year
  Sex: Female

DRUGS (3)
  1. AVIANE [Suspect]
     Active Substance: ETHINYL ESTRADIOL\LEVONORGESTREL
     Indication: CONTRACEPTION
     Dosage: 0.10 MG/0.02 MG
  2. MELATONIN [Concomitant]
     Active Substance: MELATONIN
     Route: 065
  3. BUPROPRION HCL [Concomitant]
     Active Substance: BUPROPION HYDROCHLORIDE
     Dosage: EXTENDED RELEASE
     Route: 065

REACTIONS (3)
  - Dysphagia [Recovered/Resolved]
  - Rash [Recovered/Resolved]
  - Pruritus [Recovered/Resolved]

NARRATIVE: CASE EVENT DATE: 20180606
